FAERS Safety Report 20318816 (Version 4)
Quarter: 2023Q2

REPORT INFORMATION
  Report Type: Spontaneous
  Country: US (occurrence: US)
  Receive Date: 20220110
  Receipt Date: 20230407
  Transmission Date: 20230722
  Serious: No
  Sender: FDA-Public Use
  Company Number: US-PFIZER INC-2021593084

PATIENT
  Age: 52 Year
  Sex: Male
  Weight: 81.633 kg

DRUGS (3)
  1. SUTENT [Suspect]
     Active Substance: SUNITINIB MALATE
     Indication: Neoplasm malignant
     Dosage: 50 MG, CYCLIC (DOING 2 WEEKS ON 1 WEEK OFF, THEN 2 WEEKS ON AND 1 WEEK OFF EACH CYCLE)
     Route: 048
     Dates: start: 201001
  2. SUTENT [Suspect]
     Active Substance: SUNITINIB MALATE
     Indication: Gastrointestinal stromal tumour
     Dosage: 50 MG
  3. SUTENT [Suspect]
     Active Substance: SUNITINIB MALATE
     Indication: Hepatic neoplasm

REACTIONS (1)
  - Neoplasm progression [Not Recovered/Not Resolved]
